FAERS Safety Report 6420037-0 (Version None)
Quarter: 2009Q4

REPORT INFORMATION
  Report Type: 
  Country: None (occurrence: None)
  Receive Date: 20091029
  Receipt Date: 20090714
  Transmission Date: 20100525
  Serious: No
  Sender: FDA-Public Use
  Company Number: A0796872A

PATIENT
  Age: 60 Year
  Sex: Female

DRUGS (13)
  1. IMITREX [Suspect]
     Indication: MIGRAINE
     Route: 045
     Dates: start: 20090711
  2. ZOFRAN [Concomitant]
  3. NORCO [Concomitant]
  4. PROMETHAZINE [Concomitant]
  5. SYNTHROID [Concomitant]
  6. LIPITOR [Concomitant]
  7. LEXAPRO [Concomitant]
  8. PREMARIN [Concomitant]
  9. ACIPHEX [Concomitant]
  10. LIBRAX [Concomitant]
  11. SOMA [Concomitant]
  12. XANAX [Concomitant]
  13. BUTALBITAL [Concomitant]

REACTIONS (2)
  - FEELING ABNORMAL [None]
  - INSOMNIA [None]
